FAERS Safety Report 7421725-X (Version None)
Quarter: 2011Q1

REPORT INFORMATION
  Report Type: 
  Country: None (occurrence: None)
  Receive Date: 20110302
  Receipt Date: 20101123
  Transmission Date: 20110831
  Serious: No
  Sender: FDA-Public Use
  Company Number: 022644

PATIENT
  Sex: Female
  Weight: 83.9 kg

DRUGS (2)
  1. VICODIN [Concomitant]
  2. CIMZIA [Suspect]
     Indication: RHEUMATOID ARTHRITIS
     Dosage: 200 MG 1X/2 WEEKS SUBCUTANEOUS
     Route: 058

REACTIONS (1)
  - INJECTION SITE PAIN [None]
